FAERS Safety Report 25578868 (Version 1)
Quarter: 2025Q3

REPORT INFORMATION
  Report Type: Spontaneous
  Country: CN (occurrence: CN)
  Receive Date: 20250718
  Receipt Date: 20250718
  Transmission Date: 20251020
  Serious: Yes (Other)
  Sender: AMGEN
  Company Number: CN-AMGEN-CHNSP2025138413

PATIENT

DRUGS (2)
  1. XGEVA [Suspect]
     Active Substance: DENOSUMAB
     Indication: Lung neoplasm malignant
     Route: 065
  2. XGEVA [Suspect]
     Active Substance: DENOSUMAB
     Indication: Metastases to bone

REACTIONS (9)
  - Spinal cord compression [Unknown]
  - Metastases to spine [Unknown]
  - Hypocalcaemia [Unknown]
  - Hypercalcaemia [Unknown]
  - Hypermagnesaemia [Unknown]
  - Hyperphosphataemia [Unknown]
  - Hypomagnesaemia [Unknown]
  - Bone pain [Unknown]
  - Hypophosphataemia [Unknown]
